FAERS Safety Report 13958381 (Version 1)
Quarter: 2017Q3

REPORT INFORMATION
  Report Type: Spontaneous
  Country: US (occurrence: US)
  Receive Date: 20170911
  Receipt Date: 20170911
  Transmission Date: 20171128
  Serious: No
  Sender: FDA-Public Use
  Company Number: US-ELI_LILLY_AND_COMPANY-US201709002389

PATIENT
  Sex: Female

DRUGS (4)
  1. XARELTO [Concomitant]
     Active Substance: RIVAROXABAN
     Indication: ATRIAL FIBRILLATION
     Dosage: 15 MG, UNKNOWN
     Route: 065
  2. PROTONIX [Concomitant]
     Active Substance: PANTOPRAZOLE SODIUM
     Indication: ABDOMINAL DISCOMFORT
     Dosage: 40 MG, UNKNOWN
     Route: 065
  3. DIAVAN [Concomitant]
     Active Substance: ASCORBIC ACID\CHROMIUM\SELENIUM\VANADYL SULFATE
     Indication: BLOOD PRESSURE MEASUREMENT
     Dosage: 160 MG, UNKNOWN
     Route: 065
  4. BASAGLAR [Suspect]
     Active Substance: INSULIN GLARGINE
     Indication: TYPE 2 DIABETES MELLITUS
     Dosage: 38 IU, DAILY
     Route: 058

REACTIONS (1)
  - Abdominal pain upper [Unknown]
